FAERS Safety Report 8003193-2 (Version None)
Quarter: 2011Q4

REPORT INFORMATION
  Report Type: 
  Country: None (occurrence: None)
  Receive Date: 20111222
  Receipt Date: 20111215
  Transmission Date: 20120403
  Serious: Yes (Hospitalization)
  Sender: FDA-Public Use
  Company Number: PHHY2011BR109788

PATIENT
  Sex: Female

DRUGS (5)
  1. FORMOTEROL FUMARATE [Concomitant]
     Indication: HYPERTENSION
     Dosage: UNK
  2. AMLODIPINE BESYLATE [Concomitant]
     Indication: HYPERTENSION
     Route: 048
  3. LEVOTHYROXINE SODIUM [Concomitant]
     Indication: THYROID DISORDER
  4. GLIMEPIRIDE [Concomitant]
     Indication: DIABETES MELLITUS
     Route: 048
  5. ONBREZ [Suspect]
     Indication: BRONCHITIS
     Dosage: 1 DF, UNK
     Route: 048
     Dates: start: 20111213, end: 20111214

REACTIONS (2)
  - BLOOD PRESSURE FLUCTUATION [None]
  - BLOOD GLUCOSE ABNORMAL [None]
